FAERS Safety Report 4938298-3 (Version None)
Quarter: 2006Q1

REPORT INFORMATION
  Report Type: 
  Country: None (occurrence: None)
  Receive Date: 20060309
  Receipt Date: 20060307
  Transmission Date: 20060701
  Serious: Yes (Other)
  Sender: FDA-Public Use
  Company Number: US-GLAXOSMITHKLINE-A0596510A

PATIENT
  Age: 7 Year
  Sex: Male

DRUGS (1)
  1. LAMICTAL [Suspect]
     Indication: EPILEPSY
     Dosage: 175MG VARIABLE DOSE
     Route: 048
     Dates: start: 20050901

REACTIONS (7)
  - ATONIC SEIZURES [None]
  - CONVULSION [None]
  - DRUG INEFFECTIVE [None]
  - HYPERVIGILANCE [None]
  - IRRITABILITY [None]
  - MOUTH ULCERATION [None]
  - RASH [None]
